FAERS Safety Report 4733809-5 (Version None)
Quarter: 2005Q3

REPORT INFORMATION
  Report Type: 
  Country: None (occurrence: None)
  Receive Date: 20050729
  Receipt Date: 20050711
  Transmission Date: 20060218
  Serious: Yes (Other)
  Sender: FDA-Public Use
  Company Number: GBS050717856

PATIENT
  Age: 59 Year
  Sex: Male

DRUGS (3)
  1. OLANZAPINE [Suspect]
     Indication: DEPRESSION
     Dosage: 10 MG
     Dates: start: 20050422, end: 20050609
  2. OLANZAPINE [Suspect]
     Indication: PSYCHOTIC DISORDER
     Dosage: 10 MG
     Dates: start: 20050422, end: 20050609
  3. SERTRALINE HCL [Concomitant]

REACTIONS (2)
  - COAGULOPATHY [None]
  - HEPATITIS [None]
